FAERS Safety Report 10302350 (Version 1)
Quarter: 2014Q3

REPORT INFORMATION
  Report Type: Spontaneous
  Country: US (occurrence: US)
  Receive Date: 20140714
  Receipt Date: 20140714
  Transmission Date: 20150326
  Serious: Yes (Other)
  Sender: FDA-Public Use
  Company Number: US-MALLINCKRODT-T201402786

PATIENT
  Sex: Female

DRUGS (2)
  1. OXYCODONE [Suspect]
     Active Substance: OXYCODONE
     Indication: BREAKTHROUGH PAIN
     Dosage: 30 MG, SINGLE ^NIBBLE^
     Route: 048
     Dates: start: 2013, end: 2013
  2. OXYCODONE [Suspect]
     Active Substance: OXYCODONE
     Indication: BREAKTHROUGH PAIN
     Dosage: 30 MG, UNK
     Route: 048
     Dates: start: 2013, end: 2013

REACTIONS (7)
  - Amnesia [Recovering/Resolving]
  - Lacrimation increased [Not Recovered/Not Resolved]
  - Intentional product misuse [Unknown]
  - Cerebrospinal fluid leakage [Unknown]
  - Epistaxis [Recovered/Resolved]
  - Rhinorrhoea [Not Recovered/Not Resolved]
  - Eye haemorrhage [Recovered/Resolved]

NARRATIVE: CASE EVENT DATE: 2013
